FAERS Safety Report 14481827 (Version 1)
Quarter: 2018Q1

REPORT INFORMATION
  Report Type: Spontaneous
  Country: US (occurrence: US)
  Receive Date: 20180202
  Receipt Date: 20180202
  Transmission Date: 20180509
  Serious: Yes (Life-Threatening, Other)
  Sender: FDA-Public Use
  Company Number: None

PATIENT
  Age: 42 Year
  Sex: Male
  Weight: 78.47 kg

DRUGS (1)
  1. IMATINIB MESYLATE 400MG TABLET [Suspect]
     Active Substance: IMATINIB MESYLATE
     Indication: CHRONIC MYELOID LEUKAEMIA
     Dates: start: 201705, end: 201711

REACTIONS (4)
  - Myalgia [None]
  - Flatulence [None]
  - Nausea [None]
  - Abdominal distension [None]
